FAERS Safety Report 4694353-7 (Version None)
Quarter: 2005Q2

REPORT INFORMATION
  Report Type: 
  Country: None (occurrence: None)
  Receive Date: 20050620
  Receipt Date: 20050418
  Transmission Date: 20051028
  Serious: Yes (Hospitalization)
  Sender: FDA-Public Use
  Company Number: US-AMGEN-KDL123346

PATIENT
  Sex: Female
  Weight: 68.1 kg

DRUGS (5)
  1. PROCRIT [Suspect]
     Indication: RENAL FAILURE CHRONIC
     Route: 058
     Dates: start: 20011129, end: 20050301
  2. CELLCEPT [Concomitant]
     Dates: start: 20010131
  3. CYCLOSPORINE [Concomitant]
     Dates: start: 20010131, end: 20011201
  4. PREDNISONE TAB [Concomitant]
     Dates: start: 20010131
  5. TACROLIMUS [Concomitant]
     Dates: start: 20011201

REACTIONS (2)
  - HAEMOGLOBIN DECREASED [None]
  - THERAPEUTIC RESPONSE DECREASED [None]
